FAERS Safety Report 14865428 (Version 1)
Quarter: 2018Q2

REPORT INFORMATION
  Report Type: Spontaneous
  Country: US (occurrence: US)
  Receive Date: 20180508
  Receipt Date: 20180508
  Transmission Date: 20180711
  Serious: No
  Sender: FDA-Public Use
  Company Number: US-ALKERMES INC.-ALK-2017-003868

PATIENT
  Age: 48 Year
  Sex: Female
  Weight: 45.35 kg

DRUGS (1)
  1. VIVITROL [Suspect]
     Active Substance: NALTREXONE
     Indication: ALCOHOLISM
     Dosage: 380 MG, QMO
     Route: 030
     Dates: start: 20170803

REACTIONS (18)
  - Malaise [Not Recovered/Not Resolved]
  - Asthenia [Unknown]
  - Injection site pain [Recovered/Resolved]
  - Injection site warmth [Unknown]
  - Influenza like illness [Not Recovered/Not Resolved]
  - Narcolepsy [Unknown]
  - Headache [Not Recovered/Not Resolved]
  - Injection site reaction [Unknown]
  - Withdrawal syndrome [Unknown]
  - Irritability [Not Recovered/Not Resolved]
  - Injection site induration [Recovered/Resolved]
  - Gait disturbance [Unknown]
  - Fatigue [Not Recovered/Not Resolved]
  - Injection site mass [Recovered/Resolved]
  - Sleep disorder due to a general medical condition [Not Recovered/Not Resolved]
  - Needle issue [Recovered/Resolved]
  - Musculoskeletal stiffness [Unknown]
  - Injection site urticaria [Unknown]

NARRATIVE: CASE EVENT DATE: 2017
